FAERS Safety Report 6209507-8 (Version None)
Quarter: 2009Q2

REPORT INFORMATION
  Report Type: 
  Country: None (occurrence: None)
  Receive Date: 20090527
  Receipt Date: 20050421
  Transmission Date: 20091009
  Serious: Yes (Death, Life-Threatening, Hospitalization)
  Sender: FDA-Public Use
  Company Number: 02100-JPN-05-0176

PATIENT
  Age: 58 Year
  Sex: Male
  Weight: 66.8 kg

DRUGS (2)
  1. PLETAL [Suspect]
     Indication: CEREBRAL INFARCTION
     Dosage: 81 MG, QD ORAL
     Route: 048
     Dates: start: 20050214, end: 20050420
  2. LOSARTAN POTASSIUM [Concomitant]

REACTIONS (12)
  - ACUTE MYOCARDIAL INFARCTION [None]
  - ANAEMIA [None]
  - ASPARTATE AMINOTRANSFERASE INCREASED [None]
  - BLOOD LACTATE DEHYDROGENASE INCREASED [None]
  - BLOOD PRESSURE DECREASED [None]
  - CARDIAC ARREST [None]
  - CARDIAC FAILURE ACUTE [None]
  - DISEASE RECURRENCE [None]
  - DUODENAL ULCER [None]
  - FEELING ABNORMAL [None]
  - GASTRIC ULCER [None]
  - LOSS OF CONSCIOUSNESS [None]
